FAERS Safety Report 10206788 (Version 1)
Quarter: 2014Q2

REPORT INFORMATION
  Report Type: Spontaneous
  Country: AR (occurrence: AR)
  Receive Date: 20140530
  Receipt Date: 20140530
  Transmission Date: 20141212
  Serious: Yes (Hospitalization, Other)
  Sender: FDA-Public Use
  Company Number: AR-PFIZER INC-2014147673

PATIENT
  Age: 48 Year
  Sex: 0

DRUGS (1)
  1. SUNITINIB MALATE [Suspect]
     Indication: CLEAR CELL RENAL CELL CARCINOMA
     Dosage: 50 MG, DAILY

REACTIONS (8)
  - Pneumonia [Unknown]
  - Pyrexia [Unknown]
  - Diarrhoea [Unknown]
  - Electrolyte imbalance [Unknown]
  - Hypertension [Unknown]
  - Mucosal inflammation [Unknown]
  - Hair colour changes [Unknown]
  - Yellow skin [Unknown]
